FAERS Safety Report 12406023 (Version 1)
Quarter: 2016Q2

REPORT INFORMATION
  Report Type: Spontaneous
  Country: GB (occurrence: GB)
  Receive Date: 20160526
  Receipt Date: 20160526
  Transmission Date: 20160815
  Serious: Yes (Other)
  Sender: FDA-Public Use
  Company Number: GB-TEVA-662812ACC

PATIENT
  Sex: Female
  Weight: 48.7 kg

DRUGS (3)
  1. RAMIPRIL. [Suspect]
     Active Substance: RAMIPRIL
     Indication: HYPERTENSION
  2. SUMATRIPTAN. [Concomitant]
     Active Substance: SUMATRIPTAN
     Indication: MIGRAINE
  3. RAMIPRIL. [Suspect]
     Active Substance: RAMIPRIL

REACTIONS (3)
  - Implant site haemorrhage [Recovered/Resolved]
  - Fatigue [Recovered/Resolved]
  - Rash macular [Not Recovered/Not Resolved]
